FAERS Safety Report 6566270-9 (Version None)
Quarter: 2010Q1

REPORT INFORMATION
  Report Type: 
  Country: None (occurrence: None)
  Receive Date: 20100127
  Receipt Date: 20100115
  Transmission Date: 20100710
  Serious: Yes (Death, Other)
  Sender: FDA-Public Use
  Company Number: 234161K09USA

PATIENT
  Age: 56 Year
  Sex: Female
  Weight: 104 kg

DRUGS (2)
  1. REBIF [Suspect]
     Indication: MULTIPLE SCLEROSIS
     Dosage: 22 MCG, 3 IN 1 WEEKS, SUBCUTANEOUS; 44 MCG,
     Route: 058
     Dates: start: 20000414, end: 20070101
  2. SYNTHROID [Concomitant]

REACTIONS (8)
  - BALANCE DISORDER [None]
  - BREAST CANCER IN SITU [None]
  - CLAVICLE FRACTURE [None]
  - FALL [None]
  - MYOCARDIAL INFARCTION [None]
  - SOMNOLENCE [None]
  - STRESS [None]
  - VENOUS THROMBOSIS LIMB [None]
